FAERS Safety Report 25806221 (Version 2)
Quarter: 2025Q3

REPORT INFORMATION
  Report Type: Report from Study
  Country: US (occurrence: US)
  Receive Date: 20250916
  Receipt Date: 20250919
  Transmission Date: 20251020
  Serious: Yes (Death)
  Sender: ABBVIE
  Company Number: US-ABBVIE-6460853

PATIENT
  Sex: Female

DRUGS (1)
  1. IMBRUVICA [Suspect]
     Active Substance: IBRUTINIB
     Indication: Product used for unknown indication
     Dosage: CAP 140MG-TAKE 4 CAPSULES BY MOUTH DAILY ON DAYS 1 TO 14, THEN TAKE 7 DAYS OFF EACH 21-DAY CYCLE
     Route: 048

REACTIONS (1)
  - Death [Fatal]
